FAERS Safety Report 8349444-6 (Version None)
Quarter: 2012Q2

REPORT INFORMATION
  Report Type: 
  Country: None (occurrence: None)
  Receive Date: 20120510
  Receipt Date: 20100825
  Transmission Date: 20120825
  Serious: No
  Sender: FDA-Public Use
  Company Number: US-TEVA-2010004548

PATIENT
  Sex: Male

DRUGS (17)
  1. VYVANSE [Concomitant]
  2. KLONOPIN [Concomitant]
  3. CRESTOR [Concomitant]
  4. TRICOR [Concomitant]
  5. TOPROL-XL [Concomitant]
  6. DEXTROAMPHETAMINE [Concomitant]
  7. NEURONTIN [Concomitant]
  8. AMBIEN [Concomitant]
  9. LANTUS [Concomitant]
  10. NOVOLOG [Concomitant]
  11. NUVIGIL [Suspect]
     Indication: SLEEP APNOEA SYNDROME
     Dosage: 150 MILLIGRAM;
     Route: 048
     Dates: start: 20100401, end: 20100701
  12. TRILEPTAL [Concomitant]
  13. ALTACE [Concomitant]
  14. CYMBALTA [Concomitant]
  15. PRILOSEC [Concomitant]
  16. ALLOPURINOL [Concomitant]
  17. HYDROCHLOROTHIAZIDE [Concomitant]

REACTIONS (1)
  - NAUSEA [None]
